FAERS Safety Report 6138027-4 (Version None)
Quarter: 2009Q1

REPORT INFORMATION
  Report Type: 
  Country: None (occurrence: None)
  Receive Date: 20090331
  Receipt Date: 20090130
  Transmission Date: 20090719
  Serious: Yes (Death)
  Sender: FDA-Public Use
  Company Number: US-TYCO HEALTHCARE/MALLINCKRODT-T200900471

PATIENT
  Age: 43 Year
  Sex: Female

DRUGS (4)
  1. TEMAZEPAM [Suspect]
     Route: 048
  2. VALPROIC ACID [Suspect]
     Route: 048
  3. FLUZEPAM                           /00246101/ [Suspect]
     Route: 048
  4. BUPROPION HCL [Suspect]
     Route: 048

REACTIONS (6)
  - CARDIAC ARREST [None]
  - COMPLETED SUICIDE [None]
  - DRUG TOXICITY [None]
  - ISCHAEMIA [None]
  - MULTI-ORGAN FAILURE [None]
  - UNRESPONSIVE TO STIMULI [None]
